FAERS Safety Report 16756570 (Version 3)
Quarter: 2019Q3

REPORT INFORMATION
  Report Type: Spontaneous
  Country: TW (occurrence: TW)
  Receive Date: 20190829
  Receipt Date: 20190930
  Transmission Date: 20191005
  Serious: Yes (Hospitalization, Other)
  Sender: FDA-Public Use
  Company Number: TW-ABBVIE-19K-153-2903771-00

PATIENT
  Age: 66 Year
  Sex: Female

DRUGS (2)
  1. HUMIRA [Suspect]
     Active Substance: ADALIMUMAB
     Route: 058
  2. HUMIRA [Suspect]
     Active Substance: ADALIMUMAB
     Indication: RHEUMATOID ARTHRITIS
     Route: 058
     Dates: start: 20170727, end: 20190724

REACTIONS (24)
  - Pneumonia [Unknown]
  - Spinal osteoarthritis [Unknown]
  - Phlebolith [Unknown]
  - Vertebral osteophyte [Unknown]
  - Renal cyst [Unknown]
  - Hepatic steatosis [Unknown]
  - Adrenomegaly [Unknown]
  - Decreased appetite [Not Recovered/Not Resolved]
  - Vomiting [Recovering/Resolving]
  - Metastatic lymphoma [Unknown]
  - C-reactive protein increased [Unknown]
  - Leukocytosis [Unknown]
  - Hyponatraemia [Unknown]
  - Scoliosis [Unknown]
  - Metastases to kidney [Unknown]
  - Gallbladder oedema [Unknown]
  - Ascites [Unknown]
  - Pleural effusion [Unknown]
  - Atelectasis [Unknown]
  - Neurofibromatosis [Unknown]
  - Lung infiltration [Unknown]
  - Splenomegaly [Unknown]
  - Renal mass [Unknown]
  - Pleural effusion [Unknown]

NARRATIVE: CASE EVENT DATE: 20190817
